FAERS Safety Report 5385179-X (Version None)
Quarter: 2007Q3

REPORT INFORMATION
  Report Type: 
  Country: None (occurrence: None)
  Receive Date: 20070706
  Receipt Date: 20061009
  Transmission Date: 20080115
  Serious: Yes (Disabling)
  Sender: FDA-Public Use
  Company Number: M-06-0844

PATIENT
  Age: 69 Year
  Sex: Male

DRUGS (2)
  1. PACERONE [Suspect]
     Indication: ATRIAL FIBRILLATION
     Dosage: 200 MG, QD, PO
     Route: 048
     Dates: start: 20010501, end: 20011116
  2. ATENOLOL [Concomitant]

REACTIONS (4)
  - BLINDNESS UNILATERAL [None]
  - OPTIC NEUROPATHY [None]
  - VISUAL ACUITY REDUCED [None]
  - VISUAL FIELD DEFECT [None]
